FAERS Safety Report 20369161 (Version 1)
Quarter: 2022Q1

REPORT INFORMATION
  Report Type: Spontaneous
  Country: US (occurrence: None)
  Receive Date: 20220123
  Receipt Date: 20220123
  Transmission Date: 20220424
  Serious: Yes (Life-Threatening, Hospitalization)
  Sender: FDA-Public Use
  Company Number: None

PATIENT
  Age: 57 Year
  Sex: Female
  Weight: 44.55 kg

DRUGS (1)
  1. SOTROVIMAB [Suspect]
     Active Substance: SOTROVIMAB
     Indication: COVID-19
     Route: 041
     Dates: start: 20220120, end: 20220120

REACTIONS (7)
  - Oropharyngeal pain [None]
  - Headache [None]
  - Back pain [None]
  - Infusion related reaction [None]
  - Chest pain [None]
  - Acute pulmonary oedema [None]
  - COVID-19 pneumonia [None]

NARRATIVE: CASE EVENT DATE: 20220120
